FAERS Safety Report 8960727 (Version 3)
Quarter: 2013Q1

REPORT INFORMATION
  Report Type: Spontaneous
  Country: US (occurrence: US)
  Receive Date: 20121213
  Receipt Date: 20130108
  Transmission Date: 20140127
  Serious: Yes (Death, Life-Threatening, Other)
  Sender: FDA-Public Use
  Company Number: US-009507513-1212USA004391

PATIENT
  Age: 28 Year
  Sex: Male

DRUGS (1)
  1. ISENTRESS [Suspect]
     Dosage: 1 DF, BID
     Route: 048

REACTIONS (3)
  - Death [Fatal]
  - Kaposi^s sarcoma [Fatal]
  - Multi-organ failure [Fatal]
